FAERS Safety Report 9700269 (Version 2)
Quarter: 2013Q4

REPORT INFORMATION
  Report Type: Spontaneous
  Country: JP (occurrence: JP)
  Receive Date: 20131121
  Receipt Date: 20131121
  Transmission Date: 20140711
  Serious: Yes (Other)
  Sender: FDA-Public Use
  Company Number: JP-JNJFOC-20131109394

PATIENT
  Age: 5 Decade
  Sex: Male

DRUGS (7)
  1. PREZISTA [Suspect]
     Indication: HIV TEST POSITIVE
     Route: 048
  2. ABACAVIR SULFATE [Concomitant]
     Indication: HIV TEST POSITIVE
     Route: 048
  3. LAMIVUDINE [Concomitant]
     Indication: HIV TEST POSITIVE
     Route: 048
  4. ISONIAZID [Concomitant]
     Indication: PULMONARY TUBERCULOSIS
     Route: 065
  5. RIFABUTIN [Concomitant]
     Indication: PULMONARY TUBERCULOSIS
     Route: 048
  6. ETHAMBUTOL HYDROCHLORIDE [Concomitant]
     Indication: PULMONARY TUBERCULOSIS
     Route: 048
  7. LEVOFLOXACIN HYDRATE [Concomitant]
     Indication: PULMONARY TUBERCULOSIS
     Route: 065

REACTIONS (2)
  - Immune reconstitution inflammatory syndrome [Unknown]
  - Tuberculoma of central nervous system [Unknown]
